FAERS Safety Report 7360239-2 (Version None)
Quarter: 2011Q1

REPORT INFORMATION
  Report Type: 
  Country: None (occurrence: None)
  Receive Date: 20110307
  Receipt Date: 20110222
  Transmission Date: 20110831
  Serious: Yes (Hospitalization, Other)
  Sender: FDA-Public Use
  Company Number: ACO_21921_2011

PATIENT
  Age: 48 Year
  Sex: Female

DRUGS (5)
  1. LEXAPRO [Concomitant]
  2. BETASERON [Suspect]
     Dosage: 10 MG, BID, ORAL; ^50% OF THE PREVIOUS DOSE^
     Route: 048
     Dates: start: 20101101, end: 20110201
  3. BETASERON [Suspect]
     Dosage: 10 MG, BID, ORAL; ^50% OF THE PREVIOUS DOSE^
     Route: 048
     Dates: end: 20110101
  4. AMPYRA [Suspect]
     Indication: PRODUCT USED FOR UNKNOWN INDICATION
     Dosage: 10 MG, BID, ORAL
     Route: 048
     Dates: start: 20101101, end: 20110201
  5. PROTONIX [Concomitant]

REACTIONS (16)
  - CONVULSION [None]
  - URINARY INCONTINENCE [None]
  - MULTIPLE SCLEROSIS RELAPSE [None]
  - URINARY TRACT INFECTION [None]
  - ASTHENIA [None]
  - TONGUE BITING [None]
  - EYE PAIN [None]
  - FAECAL INCONTINENCE [None]
  - THERAPEUTIC RESPONSE UNEXPECTED [None]
  - HEART RATE DECREASED [None]
  - BLOOD PRESSURE DECREASED [None]
  - LABORATORY TEST INTERFERENCE [None]
  - TREMOR [None]
  - LETHARGY [None]
  - MUSCLE SPASMS [None]
  - LOSS OF CONSCIOUSNESS [None]
